FAERS Safety Report 7183455-1 (Version None)
Quarter: 2010Q4

REPORT INFORMATION
  Report Type: 
  Country: None (occurrence: None)
  Receive Date: 20101210
  Receipt Date: 20101119
  Transmission Date: 20110411
  Serious: Yes (Hospitalization)
  Sender: FDA-Public Use
  Company Number: 2010P1002821

PATIENT
  Age: 76 Year
  Sex: Female

DRUGS (2)
  1. CIPROFLOXACIN HCL [Suspect]
     Indication: OROPHARYNGEAL PAIN
  2. C0N MEDS [Concomitant]

REACTIONS (4)
  - BRONCHIAL OBSTRUCTION [None]
  - COLLAPSE OF LUNG [None]
  - FOREIGN BODY ASPIRATION [None]
  - HYPOXIA [None]
